FAERS Safety Report 26135131 (Version 1)
Quarter: 2025Q4

REPORT INFORMATION
  Report Type: Spontaneous
  Country: US (occurrence: None)
  Receive Date: 20251208
  Receipt Date: 20251208
  Transmission Date: 20260118
  Serious: Yes (Other)
  Sender: FDA-CTU
  Company Number: None

PATIENT
  Age: 40 Year
  Sex: Female
  Weight: 82.8 kg

DRUGS (3)
  1. ZEPBOUND [Suspect]
     Active Substance: TIRZEPATIDE
     Dosage: OTHER FREQUENCY : WEEKLY;
     Route: 058
     Dates: start: 20251118
  2. Concerta 75 mg ER tablet [Concomitant]
  3. Ritalin 10 mg tablet [Concomitant]

REACTIONS (3)
  - Dysaesthesia [None]
  - Neuralgia [None]
  - Hypoaesthesia [None]
